FAERS Safety Report 7587701-1 (Version None)
Quarter: 2011Q3

REPORT INFORMATION
  Report Type: 
  Country: None (occurrence: None)
  Receive Date: 20110704
  Receipt Date: 20110630
  Transmission Date: 20111222
  Serious: Yes (Hospitalization)
  Sender: FDA-Public Use
  Company Number: US-BRISTOL-MYERS SQUIBB COMPANY-15870330

PATIENT
  Age: 60 Year
  Sex: Male
  Weight: 106 kg

DRUGS (3)
  1. ERBITUX [Suspect]
     Indication: OESOPHAGEAL CARCINOMA
     Dosage: LAST DOSE:14JUN2011
     Dates: start: 20110516
  2. TAXOL [Suspect]
     Indication: OESOPHAGEAL CARCINOMA
     Dosage: LAST DOSE:14JUN2011
     Dates: start: 20110516
  3. CISPLATIN [Suspect]
     Indication: OESOPHAGEAL CARCINOMA
     Dosage: LAST DOSE:14JUN2011
     Dates: start: 20110516

REACTIONS (4)
  - OESOPHAGITIS [None]
  - DEHYDRATION [None]
  - NAUSEA [None]
  - DECREASED APPETITE [None]
